FAERS Safety Report 4331373-6 (Version None)
Quarter: 2004Q2

REPORT INFORMATION
  Report Type: 
  Country: None (occurrence: None)
  Receive Date: 20040405
  Receipt Date: 20040325
  Transmission Date: 20050107
  Serious: Yes (Other)
  Sender: FDA-Public Use
  Company Number: GB-BRISTOL-MYERS SQUIBB COMPANY-12548129

PATIENT
  Sex: Female

DRUGS (4)
  1. IFOSFAMIDE [Suspect]
     Indication: LEUKAEMIA
     Route: 042
     Dates: start: 20040318, end: 20040318
  2. MESNA [Suspect]
     Indication: LEUKAEMIA
     Route: 042
     Dates: start: 20040318, end: 20040318
  3. CARBOPLATIN [Concomitant]
     Dates: start: 20040318, end: 20040318
  4. ETOPOSIDE [Concomitant]
     Dates: start: 20040318, end: 20040318

REACTIONS (1)
  - ENCEPHALOPATHY [None]
